FAERS Safety Report 6299417-2 (Version None)
Quarter: 2009Q3

REPORT INFORMATION
  Report Type: 
  Country: None (occurrence: None)
  Receive Date: 20090806
  Receipt Date: 20090731
  Transmission Date: 20100115
  Serious: Yes (Hospitalization)
  Sender: FDA-Public Use
  Company Number: AT-AVENTIS-200914462EU

PATIENT
  Age: 85 Year
  Sex: Male
  Weight: 50 kg

DRUGS (13)
  1. LASIX [Suspect]
     Route: 048
  2. COMBIVENT [Concomitant]
     Dosage: DOSE: UNK
     Route: 055
  3. FOSAMAX [Concomitant]
     Dosage: DOSE: UNK
     Route: 048
  4. HYDAL [Concomitant]
     Route: 048
  5. KOMBI-KALZ [Concomitant]
     Dosage: DOSE: UNK
     Route: 048
  6. MIRTABENE [Concomitant]
     Route: 048
  7. NOVALGIN                           /00039501/ [Concomitant]
     Dosage: DOSE: UNK
     Route: 048
  8. PANTOLOC                           /01263201/ [Concomitant]
     Route: 048
  9. PLAVIX [Concomitant]
     Dosage: DOSE: UNK
     Route: 048
  10. SPIRIVA [Concomitant]
     Dosage: DOSE: UNK
     Route: 055
  11. SYMBICORT [Concomitant]
     Dosage: DOSE: UNK
     Route: 055
  12. TRENTAL [Concomitant]
     Route: 048
  13. SIMVASTATIN [Concomitant]

REACTIONS (2)
  - CIRCULATORY COLLAPSE [None]
  - HYPOKALAEMIA [None]
